FAERS Safety Report 16625814 (Version 1)
Quarter: 2019Q3

REPORT INFORMATION
  Report Type: Report from Study
  Country: US (occurrence: US)
  Receive Date: 20190724
  Receipt Date: 20190724
  Transmission Date: 20191004
  Serious: Yes (Hospitalization, Other)
  Sender: FDA-Public Use
  Company Number: US-PFIZER INC-2019260253

PATIENT
  Age: 74 Year
  Sex: Female

DRUGS (1)
  1. XELJANZ [Suspect]
     Active Substance: TOFACITINIB CITRATE
     Indication: RHEUMATOID ARTHRITIS
     Dosage: 5 MG, 2X/DAY
     Route: 048
     Dates: start: 20190513, end: 20190701

REACTIONS (7)
  - Feeling abnormal [Unknown]
  - Depression [Unknown]
  - Pyrexia [Unknown]
  - Intestinal obstruction [Unknown]
  - Abdominal pain [Unknown]
  - Large intestine infection [Unknown]
  - Bowel movement irregularity [Unknown]
